FAERS Safety Report 8044053 (Version 5)
Quarter: 2012Q4

REPORT INFORMATION
  Report Type: 
  Country: UY (occurrence: UY)
  Receive Date: 20110719
  Receipt Date: 20121217
  Transmission Date: 20130627
  Serious: Yes (Hospitalization, Other)
  Sender: FDA-Public Use
  Company Number: UY-ABBOTT-11P-168-0837995-00

PATIENT
  Age: 56 None
  Sex: Female
  Weight: 62 kg

DRUGS (4)
  1. HUMIRA 40 MG/ 0.8 ML PRE-FILLED SYRINGE [Suspect]
     Indication: RHEUMATOID ARTHRITIS
     Route: 058
     Dates: start: 201010, end: 201106
  2. METHOTREXATE [Suspect]
     Indication: RHEUMATOID ARTHRITIS
     Route: 048
     Dates: end: 201106
  3. PREDNISONE [Suspect]
     Indication: RHEUMATOID ARTHRITIS
     Route: 048
     Dates: end: 201106
  4. DICLOFENAC [Concomitant]
     Indication: PAIN
     Dosage: 100 mg daily as required

REACTIONS (2)
  - Disseminated tuberculosis [Unknown]
  - Pyrexia [Not Recovered/Not Resolved]
